FAERS Safety Report 9380886 (Version 3)
Quarter: 2013Q4

REPORT INFORMATION
  Report Type: Spontaneous
  Country: FR (occurrence: FR)
  Receive Date: 20130703
  Receipt Date: 20131015
  Transmission Date: 20140711
  Serious: Yes (Hospitalization, Other)
  Sender: FDA-Public Use
  Company Number: FR-PFIZER INC-2013193665

PATIENT
  Age: 78 Year
  Sex: Female

DRUGS (8)
  1. XANAX [Suspect]
     Dosage: 0.25 - 0.25 - 0.5 MG, RESPECTIVELY IN THE MORNING, NOON, AND EVENING
     Route: 048
  2. XANAX [Suspect]
     Dosage: 0.25 MG, 1X/DAY (1 DF)
     Route: 048
  3. LYRICA [Suspect]
     Dosage: 50 MG, 2X/DAY (2 DF)
     Route: 048
  4. NORSET [Suspect]
     Dosage: 15 MG, 1X/DAY
     Route: 048
     Dates: start: 201304, end: 201305
  5. NORSET [Suspect]
     Dosage: 15 MG, 2X/DAY
     Dates: start: 20130523
  6. MOVICOL [Concomitant]
     Dosage: 1 DF, 2X/DAY
     Route: 048
  7. PARACETAMOL [Concomitant]
     Dosage: 1 G, 4X/DAY
     Route: 048
  8. LANSOYL [Concomitant]
     Dosage: 1 DF, 1X/DAY
     Route: 048

REACTIONS (5)
  - Withdrawal syndrome [Recovering/Resolving]
  - Confusional state [Recovering/Resolving]
  - Dysarthria [Recovering/Resolving]
  - Cognitive disorder [Not Recovered/Not Resolved]
  - Disturbance in attention [Recovering/Resolving]
